FAERS Safety Report 7107350-9 (Version None)
Quarter: 2010Q4

REPORT INFORMATION
  Report Type: 
  Country: None (occurrence: None)
  Receive Date: 20101112
  Receipt Date: 20101112
  Transmission Date: 20110411
  Serious: No
  Sender: FDA-Public Use
  Company Number: None

PATIENT
  Age: 54 Year
  Sex: Female
  Weight: 81.6475 kg

DRUGS (8)
  1. LANSOPRAZOLE [Suspect]
     Indication: GASTROOESOPHAGEAL REFLUX DISEASE
     Dosage: 30 MG ONCE DAILY ORALLY
     Route: 048
     Dates: start: 20101004, end: 20101102
  2. LANSOPRAZOLE [Suspect]
     Indication: HIATUS HERNIA
     Dosage: 30 MG ONCE DAILY ORALLY
     Route: 048
     Dates: start: 20101004, end: 20101102
  3. ZOLOFT [Concomitant]
  4. VIT D [Concomitant]
  5. FISH OIL [Concomitant]
  6. M.V.I. [Concomitant]
  7. CALCIUM [Concomitant]
  8. ALIGN [Concomitant]

REACTIONS (4)
  - DIZZINESS [None]
  - ERUCTATION [None]
  - HICCUPS [None]
  - PRODUCT SUBSTITUTION ISSUE [None]
